FAERS Safety Report 22202208 (Version 1)
Quarter: 2023Q2

REPORT INFORMATION
  Report Type: Report from Study
  Country: GB (occurrence: GB)
  Receive Date: 20230412
  Receipt Date: 20230412
  Transmission Date: 20230722
  Serious: Yes (Death, Other)
  Sender: FDA-Public Use
  Company Number: GB-Ipsen Biopharmaceuticals, Inc.-2021-13454

PATIENT
  Age: 72 Year
  Sex: Male

DRUGS (1)
  1. LANREOTIDE ACETATE [Suspect]
     Active Substance: LANREOTIDE ACETATE
     Indication: Neuroendocrine tumour
     Dosage: 120MG/0.5ML SOLUTION FOR INJECTION PRE-FILLED SYRINGES E28D
     Route: 058
     Dates: start: 20210226

REACTIONS (2)
  - Product dose omission issue [Unknown]
  - Death [Fatal]

NARRATIVE: CASE EVENT DATE: 20210501
